FAERS Safety Report 6248785-6 (Version None)
Quarter: 2009Q2

REPORT INFORMATION
  Report Type: 
  Country: None (occurrence: None)
  Receive Date: 20090624
  Receipt Date: 20090611
  Transmission Date: 20091009
  Serious: Yes (Hospitalization)
  Sender: FDA-Public Use
  Company Number: 8047724

PATIENT
  Age: 37 Year
  Sex: Female
  Weight: 110 kg

DRUGS (7)
  1. CIMZIA [Suspect]
     Indication: CROHN'S DISEASE
     Dosage: 400 MG /M SC
     Route: 058
     Dates: start: 20090408
  2. ASACOL [Concomitant]
  3. JOLEESA BIRTH CONTROL [Concomitant]
  4. GLYBURIDE [Concomitant]
  5. METFORMIN HCL [Concomitant]
  6. LISINOPRIL [Concomitant]
  7. CALCIUM W/VITAMIN D [Concomitant]

REACTIONS (5)
  - DEHYDRATION [None]
  - DIARRHOEA [None]
  - GALLBLADDER DISORDER [None]
  - NAUSEA [None]
  - VOMITING [None]
